FAERS Safety Report 10016590 (Version 1)
Quarter: 2014Q1

REPORT INFORMATION
  Report Type: Report from Study
  Country: US (occurrence: US)
  Receive Date: 20140317
  Receipt Date: 20140317
  Transmission Date: 20141002
  Serious: Yes (Other)
  Sender: FDA-Public Use
  Company Number: US-ABBVIE-14P-163-1210452-00

PATIENT
  Age: 19 Year
  Sex: Female

DRUGS (3)
  1. HUMIRA [Suspect]
     Indication: CROHN^S DISEASE
     Dosage: LOADING DOSE, DAY 1
     Dates: start: 201307, end: 201307
  2. HUMIRA [Suspect]
     Dosage: DAY 15
     Dates: start: 201307
  3. HUMIRA [Suspect]
     Dates: start: 201402, end: 201402

REACTIONS (1)
  - Fistula discharge [Recovered/Resolved]
